FAERS Safety Report 9775235 (Version 1)
Quarter: 2013Q4

REPORT INFORMATION
  Report Type: Spontaneous
  Country: US (occurrence: None)
  Receive Date: 20131219
  Receipt Date: 20131219
  Transmission Date: 20140711
  Serious: Yes (Life-Threatening, Hospitalization, Disabling, Other)
  Sender: FDA-Public Use
  Company Number: None

PATIENT
  Age: 35 Year
  Sex: Female
  Weight: 63.5 kg

DRUGS (1)
  1. ORTHO EVRA PATCH [Suspect]
     Indication: CONTRACEPTION
     Dosage: 1 PATCH ONE PER WEEK APPLIED AS MEDICATED PATCH TO SKIN
     Route: 062
     Dates: start: 20031126, end: 20131126

REACTIONS (6)
  - Myocardial infarction [None]
  - Pulmonary embolism [None]
  - Deep vein thrombosis [None]
  - Cardiac disorder [None]
  - Musculoskeletal disorder [None]
  - Abasia [None]
